FAERS Safety Report 9444669 (Version 1)
Quarter: 2013Q3

REPORT INFORMATION
  Report Type: Spontaneous
  Country: US (occurrence: US)
  Receive Date: 20130807
  Receipt Date: 20130807
  Transmission Date: 20140515
  Serious: Yes (Death, Hospitalization)
  Sender: FDA-Public Use
  Company Number: US-SANOFI-AVENTIS-2013SA078736

PATIENT
  Sex: 0

DRUGS (1)
  1. JEVTANA [Suspect]
     Indication: NON-SMALL CELL LUNG CANCER METASTATIC
     Dosage: MAY 30
     Route: 065

REACTIONS (3)
  - Leukocytosis [Fatal]
  - Bacteraemia [Fatal]
  - Colon neoplasm [Fatal]
